FAERS Safety Report 9929223 (Version 2)
Quarter: 2014Q3

REPORT INFORMATION
  Report Type: Spontaneous
  Country: CA (occurrence: None)
  Receive Date: 20140224
  Receipt Date: 20140806
  Transmission Date: 20150326
  Serious: Yes (Congenital Anomaly)
  Sender: FDA-Public Use
  Company Number: CA14-113

PATIENT
  Sex: Female

DRUGS (1)
  1. DICLECTIN [Suspect]
     Active Substance: DOXYLAMINE\PYRIDOXINE
     Indication: HYPEREMESIS GRAVIDARUM
     Route: 064
     Dates: start: 20120820, end: 20121214

REACTIONS (3)
  - Limb hypoplasia congenital [None]
  - Congenital anomaly [None]
  - Maternal drugs affecting foetus [None]

NARRATIVE: CASE EVENT DATE: 2013
